FAERS Safety Report 11129202 (Version 1)
Quarter: 2015Q2

REPORT INFORMATION
  Report Type: Spontaneous
  Country: None (occurrence: US)
  Receive Date: 20150521
  Receipt Date: 20150521
  Transmission Date: 20150821
  Serious: Yes (Other)
  Sender: FDA-Public Use
  Company Number: US-ENDO PHARMACEUTICALS INC.-2015-000946

PATIENT
  Age: 29 Year
  Sex: Female

DRUGS (1)
  1. PREVIFEM [Suspect]
     Active Substance: ETHINYL ESTRADIOL\NORGESTIMATE
     Indication: CONTRACEPTION
     Route: 048
     Dates: start: 201502, end: 201502

REACTIONS (6)
  - Vomiting [Recovered/Resolved]
  - Heart rate increased [Recovered/Resolved]
  - Tremor [Recovered/Resolved]
  - Confusional state [Recovered/Resolved]
  - Pyrexia [Recovered/Resolved]
  - Drug hypersensitivity [Recovered/Resolved]

NARRATIVE: CASE EVENT DATE: 201502
